FAERS Safety Report 19167735 (Version 1)
Quarter: 2021Q2

REPORT INFORMATION
  Report Type: Spontaneous
  Country: US (occurrence: US)
  Receive Date: 20210422
  Receipt Date: 20210422
  Transmission Date: 20210717
  Serious: No
  Sender: FDA-Public Use
  Company Number: US-JNJFOC-20210415145

PATIENT
  Sex: Male

DRUGS (1)
  1. TYLENOL [Suspect]
     Active Substance: ACETAMINOPHEN
     Indication: PAIN
     Dosage: HE STARTED USING IT A COUPLE OF MONTHS AGO, MAYBE MORE.
     Route: 065

REACTIONS (3)
  - Incorrect product administration duration [Unknown]
  - Product administration error [Unknown]
  - Drug ineffective [Unknown]
